FAERS Safety Report 24107893 (Version 1)
Quarter: 2024Q3

REPORT INFORMATION
  Report Type: Report from Study
  Country: IL (occurrence: IL)
  Receive Date: 20240718
  Receipt Date: 20240718
  Transmission Date: 20241017
  Serious: Yes (Death)
  Sender: AMGEN
  Company Number: IL-AMGEN-ISRSL2024141343

PATIENT
  Age: 91 Year
  Sex: Female

DRUGS (1)
  1. NPLATE [Suspect]
     Active Substance: ROMIPLOSTIM
     Indication: Immune thrombocytopenia
     Dosage: UNK UNK, QWK
     Route: 065
     Dates: start: 20230828

REACTIONS (1)
  - Death [Fatal]

NARRATIVE: CASE EVENT DATE: 20240626
